FAERS Safety Report 17829420 (Version 3)
Quarter: 2020Q2

REPORT INFORMATION
  Report Type: Report from Study
  Country: JP (occurrence: JP)
  Receive Date: 20200527
  Receipt Date: 20200602
  Transmission Date: 20200714
  Serious: Yes (Hospitalization)
  Sender: FDA-Public Use
  Company Number: JP-EISAI MEDICAL RESEARCH-EC-2020-075066

PATIENT
  Age: 68 Year
  Sex: Male
  Weight: 88 kg

DRUGS (11)
  1. CARBAZOCHROME SODIUM SUFLONATE HYDRATE [Concomitant]
     Route: 048
  2. HEPARINOID [Concomitant]
     Active Substance: CHONDROITIN SULFATE (BOVINE)
     Route: 062
  3. PRAVASTATIN SODIUM. [Concomitant]
     Active Substance: PRAVASTATIN SODIUM
     Route: 048
  4. AMLODIN OD [Concomitant]
     Active Substance: AMLODIPINE BESYLATE
     Route: 048
  5. MOHRUS TAPE [Concomitant]
     Active Substance: KETOPROFEN
     Route: 062
  6. NIVOLUMAB(GENETICAL RECOMBINATION) [Suspect]
     Active Substance: NIVOLUMAB
     Indication: BLADDER CANCER
     Route: 041
     Dates: start: 20200416
  7. CALONAL [Concomitant]
     Active Substance: ACETAMINOPHEN
     Route: 048
  8. LASIX [Concomitant]
     Active Substance: FUROSEMIDE
     Route: 048
  9. ERIBULIN [Suspect]
     Active Substance: ERIBULIN
     Indication: BLADDER CANCER
     Route: 041
     Dates: start: 20200416
  10. TRANEXAMIC ACID. [Concomitant]
     Active Substance: TRANEXAMIC ACID
     Route: 048
  11. ALLOPURINOL. [Concomitant]
     Active Substance: ALLOPURINOL
     Route: 048

REACTIONS (2)
  - Pneumothorax [Not Recovered/Not Resolved]
  - Pneumonia [Not Recovered/Not Resolved]

NARRATIVE: CASE EVENT DATE: 20200522
